FAERS Safety Report 24768500 (Version 3)
Quarter: 2025Q1

REPORT INFORMATION
  Report Type: Report from Study
  Country: US (occurrence: US)
  Receive Date: 20241224
  Receipt Date: 20250218
  Transmission Date: 20250408
  Serious: Yes (Hospitalization)
  Sender: ABBVIE
  Company Number: US-ABBVIE-5986000

PATIENT
  Age: 80 Year
  Sex: Female

DRUGS (3)
  1. HUMIRA [Suspect]
     Active Substance: ADALIMUMAB
     Indication: Rheumatoid arthritis
     Route: 058
     Dates: start: 20211216
  2. HUMIRA [Suspect]
     Active Substance: ADALIMUMAB
     Route: 058
     Dates: start: 20220304
  3. PREDNISONE [Concomitant]
     Active Substance: PREDNISONE
     Indication: Product used for unknown indication

REACTIONS (14)
  - Pseudostroke [Unknown]
  - Blood glucose abnormal [Unknown]
  - Neck pain [Unknown]
  - Ear pain [Not Recovered/Not Resolved]
  - Headache [Unknown]
  - Peripheral coldness [Unknown]
  - Poor peripheral circulation [Unknown]
  - Rheumatoid arthritis [Unknown]
  - Drug ineffective [Unknown]
  - Spinal osteoarthritis [Unknown]
  - Spinal stenosis [Unknown]
  - Musculoskeletal disorder [Unknown]
  - Grip strength decreased [Unknown]
  - Nodule [Unknown]

NARRATIVE: CASE EVENT DATE: 20241201
